FAERS Safety Report 8009277-7 (Version None)
Quarter: 2011Q4

REPORT INFORMATION
  Report Type: 
  Country: None (occurrence: None)
  Receive Date: 20111227
  Receipt Date: 20111221
  Transmission Date: 20120403
  Serious: Yes (Life-Threatening, Hospitalization, Other)
  Sender: FDA-Public Use
  Company Number: JP-MEDIMMUNE-MEDI-0014009

PATIENT
  Sex: Female
  Weight: 6.86 kg

DRUGS (3)
  1. DIGOXIN [Concomitant]
     Indication: CARDIAC FAILURE
     Route: 048
     Dates: start: 20100603
  2. FERRIC PYROPHOSPHATE, SOLUBLE [Concomitant]
     Indication: ANAEMIA
     Route: 048
     Dates: start: 20100927
  3. SYNAGIS [Suspect]
     Route: 030
     Dates: start: 20110101, end: 20111116

REACTIONS (11)
  - RESPIRATORY FAILURE [None]
  - DYSPNOEA [None]
  - ANAPHYLACTIC REACTION [None]
  - CYANOSIS [None]
  - HYPOVENTILATION [None]
  - BREATH SOUNDS ABNORMAL [None]
  - TRACHEOMALACIA [None]
  - PULMONARY HYPERTENSION [None]
  - PALLOR [None]
  - CRYING [None]
  - OXYGEN SATURATION DECREASED [None]
